FAERS Safety Report 20616775 (Version 1)
Quarter: 2022Q1

REPORT INFORMATION
  Report Type: Spontaneous
  Country: US (occurrence: None)
  Receive Date: 20220321
  Receipt Date: 20220321
  Transmission Date: 20220423
  Serious: No
  Sender: FDA-Public Use
  Company Number: None

PATIENT
  Age: 63 Year
  Sex: Female

DRUGS (2)
  1. GAMUNEX-C [Suspect]
     Active Substance: HUMAN IMMUNOGLOBULIN G
     Indication: Immune system disorder
     Dosage: FREQUENCY : DAILY;?
     Route: 042
     Dates: start: 20180503
  2. GAMUNEX-C [Suspect]
     Active Substance: HUMAN IMMUNOGLOBULIN G
     Indication: Immune system disorder
     Dosage: FREQUENCY : DAILY;?
     Route: 042
     Dates: start: 20180503

REACTIONS (4)
  - Nausea [None]
  - Vomiting [None]
  - Urticaria [None]
  - Headache [None]

NARRATIVE: CASE EVENT DATE: 20220315
